FAERS Safety Report 10375530 (Version 1)
Quarter: 2014Q3

REPORT INFORMATION
  Report Type: Spontaneous
  Country: FR (occurrence: None)
  Receive Date: 20140806
  Receipt Date: 20140806
  Transmission Date: 20150326
  Serious: Yes (Other)
  Sender: FDA-Public Use
  Company Number: 20140471

PATIENT
  Age: 33 Year
  Sex: Female

DRUGS (4)
  1. FERINJECT [Suspect]
     Active Substance: FERRIC CARBOXYMALTOSE
     Indication: VASCULAR GRAFT
     Route: 041
     Dates: start: 20140117
  2. ANTI VITAMIN K [Concomitant]
  3. METHOTREXATE.METHOTREXATE SODIUM [Concomitant]
  4. FERINJECT [Suspect]
     Active Substance: FERRIC CARBOXYMALTOSE
     Indication: IRON DEFICIENCY
     Route: 041
     Dates: start: 20140117

REACTIONS (3)
  - Chest discomfort [None]
  - Rash erythematous [None]
  - Hyperhidrosis [None]

NARRATIVE: CASE EVENT DATE: 20140117
